FAERS Safety Report 10038070 (Version 1)
Quarter: 2014Q1

REPORT INFORMATION
  Report Type: Spontaneous
  Country: US (occurrence: None)
  Receive Date: 20140306
  Receipt Date: 20140306
  Transmission Date: 20141002
  Serious: Yes (Other)
  Sender: FDA-Public Use
  Company Number: 163-21880-13082831

PATIENT
  Age: 64 Year
  Sex: Female
  Weight: 81.65 kg

DRUGS (11)
  1. REVLIMID (LENALIDOMIDE) (10 MILLIGRAM, CAPSULES) [Suspect]
     Indication: MYELODYSPLASTIC SYNDROME
     Dosage: 21 IN 21 D
     Route: 048
     Dates: start: 20130722, end: 20130731
  2. NORVASC (AMLODIPINE BESILATE) [Concomitant]
  3. NITROGLYCERIN (GLYCERYL TRINITRATE) (POULTICE OR PATCH) [Concomitant]
  4. ATENOLOL (ATENOLOL) [Concomitant]
  5. GABAPENTIN (GABAPENTIN) [Concomitant]
  6. METFORMIN HCL (METFORMIN HYDROCHLORIDE) [Concomitant]
  7. OMEPRAZOLE (OMEPRAZOLE) [Concomitant]
  8. SIMVASTATIN (SIMVASTATIN) [Concomitant]
  9. GLYBURIDE (GLIBENCLAMIDE) [Concomitant]
  10. MULTIVITAMINS (MULTIVITAMINS) [Concomitant]
  11. BABY ASPIRIN (ACETYLSALICYLIC ACID) [Concomitant]

REACTIONS (5)
  - Red blood cell count decreased [None]
  - Neck pain [None]
  - Paraesthesia [None]
  - Hyperhidrosis [None]
  - Headache [None]
